FAERS Safety Report 19408171 (Version 4)
Quarter: 2021Q3

REPORT INFORMATION
  Report Type: Report from Study
  Country: US (occurrence: US)
  Receive Date: 20210611
  Receipt Date: 20210727
  Transmission Date: 20211014
  Serious: Yes (Hospitalization, Other)
  Sender: FDA-Public Use
  Company Number: US-PFIZER INC-2021581197

PATIENT
  Age: 56 Year
  Sex: Female

DRUGS (5)
  1. PROTONIX [Interacting]
     Active Substance: PANTOPRAZOLE SODIUM
     Dosage: UNK
  2. IBRANCE [Interacting]
     Active Substance: PALBOCICLIB
     Dosage: 125 MG, CYCLIC (FOR 2 DAYS ON AND 1 DAY OFF)
     Route: 048
  3. IBRANCE [Interacting]
     Active Substance: PALBOCICLIB
     Dosage: 125 MG, CYCLIC (DAILY FOR 3 DAYS ON, 1 DAY OFF )
     Route: 048
     Dates: start: 20210615
  4. FEMARA [Concomitant]
     Active Substance: LETROZOLE
     Dosage: UNK, DAILY
     Route: 048
  5. IBRANCE [Suspect]
     Active Substance: PALBOCICLIB
     Indication: BREAST CANCER FEMALE
     Dosage: 125 MG, CYCLIC (DAILY FOR 21 DAYS OF 28?DAY CYCLE)
     Route: 048
     Dates: start: 20210512

REACTIONS (30)
  - Pyrexia [Recovered/Resolved]
  - Swelling face [Unknown]
  - Asthenia [Unknown]
  - Gait disturbance [Unknown]
  - Oesophagitis [Unknown]
  - Cough [Unknown]
  - Chromaturia [Unknown]
  - Genital pain [Unknown]
  - White blood cell count decreased [Recovering/Resolving]
  - Pain in extremity [Unknown]
  - Arthralgia [Unknown]
  - Blood urine present [Unknown]
  - Decreased appetite [Unknown]
  - Muscle spasms [Unknown]
  - Pulmonary embolism [Recovering/Resolving]
  - Sepsis [Recovered/Resolved]
  - Weight increased [Unknown]
  - Pain [Unknown]
  - Drug interaction [Unknown]
  - Oral candidiasis [Recovered/Resolved]
  - Feeling abnormal [Unknown]
  - Myelosuppression [Unknown]
  - Abdominal pain upper [Unknown]
  - Nausea [Not Recovered/Not Resolved]
  - Constipation [Unknown]
  - Epistaxis [Unknown]
  - Gastrooesophageal reflux disease [Unknown]
  - Vomiting [Unknown]
  - Anxiety [Unknown]
  - Feeling cold [Unknown]

NARRATIVE: CASE EVENT DATE: 2021
